FAERS Safety Report 7443570-1 (Version None)
Quarter: 2011Q2

REPORT INFORMATION
  Report Type: 
  Country: None (occurrence: None)
  Receive Date: 20110428
  Receipt Date: 20110211
  Transmission Date: 20111010
  Serious: No
  Sender: FDA-Public Use
  Company Number: US-BAUSCH-2011BL000898

PATIENT
  Age: 71 Year
  Sex: Female

DRUGS (5)
  1. TOBRAMYCIN AND DEXAMETHASONE [Suspect]
     Indication: EYE SWELLING
     Route: 047
     Dates: start: 20110126, end: 20110202
  2. AMLODIPINE BESYLATE [Concomitant]
     Indication: HYPERTENSION
     Route: 048
     Dates: start: 20101201
  3. TOBRAMYCIN AND DEXAMETHASONE [Suspect]
     Indication: LACRIMATION INCREASED
     Route: 047
     Dates: start: 20110126, end: 20110202
  4. TOBRAMYCIN AND DEXAMETHASONE [Suspect]
     Indication: EYE PRURITUS
     Route: 047
     Dates: start: 20110126, end: 20110202
  5. LESCOL [Concomitant]
     Indication: BLOOD CHOLESTEROL INCREASED
     Route: 048
     Dates: start: 20101101

REACTIONS (1)
  - DYSGEUSIA [None]
